FAERS Safety Report 4781119-2 (Version None)
Quarter: 2005Q3

REPORT INFORMATION
  Report Type: 
  Country: None (occurrence: None)
  Receive Date: 20050926
  Receipt Date: 20050915
  Transmission Date: 20060218
  Serious: Yes (Other)
  Sender: FDA-Public Use
  Company Number: 2005-09-0866

PATIENT
  Age: 78 Year
  Sex: Female

DRUGS (3)
  1. AERIUS (DESLORATADINE) TABLETS [Suspect]
     Dosage: 1 TAB QD ORAL
     Route: 048
  2. SIMVASTATIN [Suspect]
     Dosage: 10 MG QD ORAL
     Route: 048
  3. ZOCOR [Concomitant]

REACTIONS (3)
  - DIFFICULTY IN WALKING [None]
  - MYALGIA [None]
  - RASH [None]
